FAERS Safety Report 10529668 (Version 1)
Quarter: 2014Q4

REPORT INFORMATION
  Report Type: Spontaneous
  Country: US (occurrence: US)
  Receive Date: 20141021
  Receipt Date: 20141021
  Transmission Date: 20150528
  Serious: Yes (Other)
  Sender: FDA-Public Use
  Company Number: US-BEH-2014045638

PATIENT
  Sex: Female
  Weight: 58 kg

DRUGS (21)
  1. HIZENTRA [Suspect]
     Active Substance: HUMAN IMMUNOGLOBULIN G
     Indication: IMMUNODEFICIENCY COMMON VARIABLE
     Route: 058
  2. MAXAIR [Concomitant]
     Active Substance: PIRBUTEROL ACETATE
  3. ASPIRIN. [Concomitant]
     Active Substance: ASPIRIN
  4. BIAXIN [Concomitant]
     Active Substance: CLARITHROMYCIN
  5. DSS [Concomitant]
     Active Substance: DOCUSATE SODIUM
  6. PRILOSEC [Concomitant]
     Active Substance: OMEPRAZOLE MAGNESIUM
  7. IBUPROFEN. [Concomitant]
     Active Substance: IBUPROFEN
  8. LEVSIN [Concomitant]
     Active Substance: HYOSCYAMINE SULFATE
  9. RECLAST [Concomitant]
     Active Substance: ZOLEDRONIC ACID
  10. ALPRAZOLAM. [Concomitant]
     Active Substance: ALPRAZOLAM
  11. VITAMIN D [Concomitant]
     Active Substance: CHOLECALCIFEROL
  12. ZANTAC [Concomitant]
     Active Substance: RANITIDINE HYDROCHLORIDE
  13. SYNTHROID [Concomitant]
     Active Substance: LEVOTHYROXINE SODIUM
  14. MULTIVITAMIN [Concomitant]
     Active Substance: VITAMINS
  15. PERCOCET [Concomitant]
     Active Substance: ACETAMINOPHEN\OXYCODONE HYDROCHLORIDE
  16. DIPHENHYDRAMINE [Concomitant]
     Active Substance: DIPHENHYDRAMINE
  17. PREVACID [Concomitant]
     Active Substance: LANSOPRAZOLE
  18. SINGULAIR [Concomitant]
     Active Substance: MONTELUKAST SODIUM
  19. ALBUTEROL. [Concomitant]
     Active Substance: ALBUTEROL
  20. VITAMIN B COMPLEX [Concomitant]
     Active Substance: CYANOCOBALAMIN\DEXPANTHENOL\NIACINAMIDE\PYRIDOXINE HYDROCHLORIDE\RIBOFLAVIN 5^-PHOSPHATE SODIUM\THIAMINE HYDROCHLORIDE\VITAMIN B COMPLEX
  21. EPIPEN [Concomitant]
     Active Substance: EPINEPHRINE

REACTIONS (1)
  - Lymphoma [Unknown]
